FAERS Safety Report 4691657-9 (Version None)
Quarter: 2005Q2

REPORT INFORMATION
  Report Type: 
  Country: None (occurrence: None)
  Receive Date: 20050616
  Receipt Date: 20050603
  Transmission Date: 20051028
  Serious: Yes (Death, Hospitalization, Other)
  Sender: FDA-Public Use
  Company Number: GB-JNJFOC-20050602142

PATIENT
  Sex: Male

DRUGS (4)
  1. REOPRO [Suspect]
     Indication: CORONARY ARTERY SURGERY
     Route: 042
  2. CLOPIDOGREL BISULFATE [Concomitant]
     Indication: CORONARY ARTERY SURGERY
  3. ASPIRIN [Concomitant]
     Indication: CORONARY ARTERY SURGERY
  4. HEPARIN [Concomitant]
     Indication: CORONARY ARTERY SURGERY

REACTIONS (4)
  - CEREBRAL HAEMORRHAGE [None]
  - CORONARY ARTERY OCCLUSION [None]
  - HEADACHE [None]
  - THROMBOCYTOPENIA [None]
